FAERS Safety Report 5278331-5 (Version None)
Quarter: 2007Q1

REPORT INFORMATION
  Report Type: 
  Country: None (occurrence: None)
  Receive Date: 20070328
  Receipt Date: 20070315
  Transmission Date: 20070707
  Serious: Yes (Death)
  Sender: FDA-Public Use
  Company Number: IL-NOVOPROD-261735

PATIENT
  Sex: Male

DRUGS (5)
  1. NOVOSEVEN [Suspect]
     Indication: HAEMORRHAGE
     Dosage: 2X1.2 MG + 1X4.8 MG
     Dates: start: 20070301
  2. BLOOD CELLS, PACKED HUMAN [Concomitant]
     Dates: start: 20070301
  3. FRESH FROZEN PLASMA [Concomitant]
     Dates: start: 20070301
  4. CRYOPRECIPITATES [Concomitant]
     Dates: start: 20070301
  5. PLATELETS [Concomitant]
     Dates: start: 20070301

REACTIONS (1)
  - MULTI-ORGAN FAILURE [None]
